FAERS Safety Report 4547521-9 (Version None)
Quarter: 2004Q4

REPORT INFORMATION
  Report Type: 
  Country: None (occurrence: None)
  Receive Date: 20041227
  Receipt Date: 20040920
  Transmission Date: 20050328
  Serious: No
  Sender: FDA-Public Use
  Company Number: 04P-163-0274146-00

PATIENT
  Age: 42 Year
  Sex: Female

DRUGS (8)
  1. HUMIRA [Suspect]
     Indication: RHEUMATOID ARTHRITIS
     Dosage: 40 MG, 1 IN 2 WK, SUBCUTANEOUS
     Route: 058
     Dates: start: 20040101
  2. LEFLUNOMIDE [Concomitant]
  3. CELECOXIB [Concomitant]
  4. ALPRAZOLAM [Concomitant]
  5. AMITRIPTYLINE HYDROCHLORIDE [Concomitant]
  6. FENTANYL [Concomitant]
  7. PREDNISONE [Concomitant]
  8. HYDROXYCHLOROQUINE PHOSPHATE [Concomitant]

REACTIONS (1)
  - PNEUMONIA VIRAL [None]
